FAERS Safety Report 15246810 (Version 2)
Quarter: 2018Q3

REPORT INFORMATION
  Report Type: Spontaneous
  Country: CR (occurrence: CR)
  Receive Date: 20180806
  Receipt Date: 20180920
  Transmission Date: 20181010
  Serious: Yes (Life-Threatening)
  Sender: FDA-Public Use
  Company Number: PHHY2018CR040405

PATIENT
  Age: 50 Year
  Sex: Male
  Weight: 76 kg

DRUGS (6)
  1. METHOTREXATE. [Concomitant]
     Active Substance: METHOTREXATE
     Indication: PRODUCT USED FOR UNKNOWN INDICATION
     Dosage: UNK
     Route: 065
  2. VINCRISTINE [Concomitant]
     Active Substance: VINCRISTINE
     Indication: CHEMOTHERAPY
     Dosage: UNK
     Route: 065
  3. OBINUTUZUMAB. [Concomitant]
     Active Substance: OBINUTUZUMAB
     Indication: CHEMOTHERAPY
     Dosage: UNK
     Route: 065
  4. CYCLOPHOSPHAMIDE. [Concomitant]
     Active Substance: CYCLOPHOSPHAMIDE
     Indication: CHEMOTHERAPY
     Dosage: UNK
     Route: 065
  5. DOXORUBICIN [Concomitant]
     Active Substance: DOXORUBICIN
     Indication: CHEMOTHERAPY
     Dosage: UNK
     Route: 065
  6. ZARZIO [Suspect]
     Active Substance: FILGRASTIM
     Indication: NON-HODGKIN^S LYMPHOMA
     Dosage: 1 DF, Q8H
     Route: 065

REACTIONS (25)
  - Neutrophil morphology abnormal [Unknown]
  - Monocyte count increased [Unknown]
  - Basophil count increased [Unknown]
  - Neutropenia [Unknown]
  - Platelet count decreased [Unknown]
  - Anisocytosis [Unknown]
  - Band neutrophil count increased [Unknown]
  - Leukocyte vacuolisation [Unknown]
  - Eosinophil count decreased [Unknown]
  - Red cell distribution width increased [Unknown]
  - Basophilia [Unknown]
  - Punctate basophilia [Unknown]
  - White blood cell count decreased [Unknown]
  - Lymphocyte count increased [Unknown]
  - Monocyte count decreased [Unknown]
  - Haematocrit decreased [Unknown]
  - Mean platelet volume increased [Unknown]
  - Treatment failure [Unknown]
  - Lymphocyte count decreased [Unknown]
  - Red blood cell count decreased [Unknown]
  - Haemoglobin decreased [Unknown]
  - Neutrophil count increased [Unknown]
  - Poikilocytosis [Unknown]
  - Reticulocyte count increased [Unknown]
  - Laboratory test abnormal [Unknown]
